FAERS Safety Report 8859445 (Version 1)
Quarter: 2012Q4

REPORT INFORMATION
  Report Type: 
  Country: DE (occurrence: DE)
  Receive Date: 20121024
  Receipt Date: 20121024
  Transmission Date: 20130627
  Serious: Yes (Hospitalization)
  Sender: FDA-Public Use
  Company Number: DE-ABBOTT-12P-062-0997260-00

PATIENT

DRUGS (1)
  1. HUMIRA [Suspect]
     Indication: PSORIATIC ARTHROPATHY
     Route: 058
     Dates: start: 2012, end: 2012

REACTIONS (9)
  - Pyrexia [Recovered/Resolved]
  - Blood test abnormal [Recovering/Resolving]
  - Inflammation [Recovering/Resolving]
  - Bacterial infection [Unknown]
  - Abdominal pain [Recovering/Resolving]
  - Diarrhoea [Recovering/Resolving]
  - Chills [Recovering/Resolving]
  - Dizziness [Recovered/Resolved]
  - Gastrointestinal disorder [Recovering/Resolving]
